FAERS Safety Report 5582936-1 (Version None)
Quarter: 2007Q4

REPORT INFORMATION
  Report Type: 
  Country: None (occurrence: None)
  Receive Date: 20071231
  Receipt Date: 20071213
  Transmission Date: 20080405
  Serious: Yes (Death, Hospitalization)
  Sender: FDA-Public Use
  Company Number: PPC200700008

PATIENT
  Age: 78 Year
  Sex: Male
  Weight: 64 kg

DRUGS (13)
  1. VANCOMYCIN HYDROCHLORIDE [Suspect]
     Indication: ARTERIAL GRAFT
     Dosage: 2 GM (1 GM, 1 IN 12 HR), INTRAVENOUS, 2.5 GM (1.25 GM, 1 IN12 HR), INTRAVENOUS
     Route: 042
     Dates: start: 20070912, end: 20070915
  2. VANCOMYCIN HYDROCHLORIDE [Suspect]
     Indication: GRAFT INFECTION
     Dosage: 2 GM (1 GM, 1 IN 12 HR), INTRAVENOUS, 2.5 GM (1.25 GM, 1 IN12 HR), INTRAVENOUS
     Route: 042
     Dates: start: 20070912, end: 20070915
  3. VANCOMYCIN HYDROCHLORIDE [Suspect]
     Indication: ARTERIAL GRAFT
     Dosage: 2 GM (1 GM, 1 IN 12 HR), INTRAVENOUS, 2.5 GM (1.25 GM, 1 IN12 HR), INTRAVENOUS
     Route: 042
     Dates: start: 20070915, end: 20070925
  4. VANCOMYCIN HYDROCHLORIDE [Suspect]
     Indication: GRAFT INFECTION
     Dosage: 2 GM (1 GM, 1 IN 12 HR), INTRAVENOUS, 2.5 GM (1.25 GM, 1 IN12 HR), INTRAVENOUS
     Route: 042
     Dates: start: 20070915, end: 20070925
  5. FUROSEMIDE [Suspect]
     Indication: DRUG USE FOR UNKNOWN INDICATION
     Dosage: 60 MG (60 MG, 1 IN 1 D)
  6. ASPIRIN [Concomitant]
  7. ATORVASTATIN CALCIUM [Concomitant]
  8. CLOPIDOGREL [Concomitant]
  9. METOPROLOL TARTRATE [Concomitant]
  10. IRBESARTAN [Concomitant]
  11. SPIRONOLACTONE [Concomitant]
  12. CIPROFLOXACIN [Concomitant]
  13. METRONIDAZOLE [Concomitant]

REACTIONS (5)
  - CARDIAC FAILURE CONGESTIVE [None]
  - DRUG LEVEL ABOVE THERAPEUTIC [None]
  - DRUG LEVEL BELOW THERAPEUTIC [None]
  - LABORATORY TEST INTERFERENCE [None]
  - RENAL FAILURE ACUTE [None]
